FAERS Safety Report 12335135 (Version 1)
Quarter: 2016Q2

REPORT INFORMATION
  Report Type: Spontaneous
  Country: AU (occurrence: AU)
  Receive Date: 20160504
  Receipt Date: 20160504
  Transmission Date: 20160815
  Serious: Yes (Other)
  Sender: FDA-Public Use
  Company Number: AU-TEVA-653764ISR

PATIENT
  Age: 28 Year
  Sex: Female

DRUGS (3)
  1. SODIUM VALPROATE [Concomitant]
     Active Substance: VALPROATE SODIUM
  2. NUVIGIL [Suspect]
     Active Substance: ARMODAFINIL
     Indication: NARCOLEPSY
     Dosage: 250 MILLIGRAM DAILY;
     Route: 048
     Dates: start: 20160413
  3. NUVIGIL [Suspect]
     Active Substance: ARMODAFINIL
     Dosage: 62.5 MILLIGRAM DAILY;
     Route: 048
     Dates: start: 20160413

REACTIONS (8)
  - Palpitations [Unknown]
  - Feeling jittery [Unknown]
  - Anxiety [Recovering/Resolving]
  - Nausea [Unknown]
  - Intentional underdose [Unknown]
  - Dry mouth [Unknown]
  - Tachycardia [Recovering/Resolving]
  - Decreased appetite [Unknown]

NARRATIVE: CASE EVENT DATE: 20160415
